FAERS Safety Report 8960402 (Version 2)
Quarter: 2012Q4

REPORT INFORMATION
  Report Type: 
  Country: JP (occurrence: JP)
  Receive Date: 20121211
  Receipt Date: 20121227
  Transmission Date: 20130627
  Serious: Yes (Death, Hospitalization)
  Sender: FDA-Public Use
  Company Number: JP-ABBOTT-12P-087-1018816-00

PATIENT
  Age: 59 Year
  Sex: Female

DRUGS (3)
  1. CLARITH [Suspect]
     Indication: PRODUCT USED FOR UNKNOWN INDICATION
  2. FK506 [Concomitant]
     Indication: MYASTHENIA GRAVIS
  3. PREDNISOLONE [Concomitant]
     Indication: MYASTHENIA GRAVIS

REACTIONS (4)
  - Atypical mycobacterial infection [Fatal]
  - Diarrhoea [Recovering/Resolving]
  - Generalised erythema [Recovering/Resolving]
  - Skin erosion [Recovering/Resolving]
